FAERS Safety Report 12881501 (Version 1)
Quarter: 2016Q4

REPORT INFORMATION
  Report Type: Spontaneous
  Country: US (occurrence: US)
  Receive Date: 20161025
  Receipt Date: 20161025
  Transmission Date: 20170207
  Serious: No
  Sender: FDA-Public Use
  Company Number: US-GE HEALTHCARE MEDICAL DIAGNOSTICS-TTSC-PR-1606S-0001

PATIENT
  Age: 30 Year
  Sex: Female

DRUGS (3)
  1. TECHNETIUM TC99M TSC [Suspect]
     Active Substance: TECHNETIUM TC-99M SULFUR COLLOID
     Indication: DIAGNOSTIC PROCEDURE
  2. TECHNETIUM TC-99M GENERATOR [Concomitant]
     Active Substance: TECHNETIUM TC-99M
  3. TECHNETIUM TC99M TSC [Suspect]
     Active Substance: TECHNETIUM TC-99M SULFUR COLLOID
     Indication: PRODUCT USED FOR UNKNOWN INDICATION
     Route: 048
     Dates: start: 20160723, end: 20160723

REACTIONS (1)
  - Rash [Unknown]

NARRATIVE: CASE EVENT DATE: 20150723
